FAERS Safety Report 12294553 (Version 1)
Quarter: 2016Q2

REPORT INFORMATION
  Report Type: Report from Study
  Country: JP (occurrence: JP)
  Receive Date: 20160422
  Receipt Date: 20160422
  Transmission Date: 20160815
  Serious: Yes (Hospitalization, Other)
  Sender: FDA-Public Use
  Company Number: JP-EISAI MEDICAL RESEARCH-EC-2015-002888

PATIENT
  Age: 21 Year
  Sex: Female
  Weight: 49 kg

DRUGS (9)
  1. ALEVIATIN [Concomitant]
     Active Substance: PHENYTOIN SODIUM
  2. E KEPPRA [Concomitant]
     Active Substance: LEVETIRACETAM
  3. INOVELON [Suspect]
     Active Substance: RUFINAMIDE
     Route: 048
     Dates: start: 20151002
  4. INOVELON [Suspect]
     Active Substance: RUFINAMIDE
     Indication: LENNOX-GASTAUT SYNDROME
     Route: 048
     Dates: start: 20130722, end: 20151001
  5. DEPAKENE [Concomitant]
     Active Substance: VALPROIC ACID
  6. FOLIAMIN [Concomitant]
     Active Substance: FOLIC ACID
  7. RIVOTRIL [Concomitant]
     Active Substance: CLONAZEPAM
  8. DIAPP [Concomitant]
     Active Substance: DIAZEPAM
  9. EXCEGRAN [Concomitant]
     Active Substance: ZONISAMIDE

REACTIONS (1)
  - Status epilepticus [Recovered/Resolved]

NARRATIVE: CASE EVENT DATE: 20131105
